FAERS Safety Report 11796059 (Version 1)
Quarter: 2015Q4

REPORT INFORMATION
  Report Type: Report from Study
  Country: US (occurrence: US)
  Receive Date: 20151203
  Receipt Date: 20151203
  Transmission Date: 20160305
  Serious: Yes (Death, Hospitalization)
  Sender: FDA-Public Use
  Company Number: US-ROCHE-1667078

PATIENT
  Age: 73 Year
  Sex: Female

DRUGS (2)
  1. BEVACIZUMAB [Suspect]
     Active Substance: BEVACIZUMAB
     Indication: BREAST CANCER METASTATIC
     Dosage: OVER 30 TO 90 MINUTES ON DAYS 1 AND 15
     Route: 042
     Dates: start: 20100903
  2. PACLITAXEL ALBUMIN [Suspect]
     Active Substance: PACLITAXEL
     Indication: BREAST CANCER METASTATIC
     Dosage: OVER 30 MINUTES ON DAYS 1, 8 AND 15
     Route: 042
     Dates: start: 20100903

REACTIONS (4)
  - Anaemia [Fatal]
  - Abdominal pain [Fatal]
  - Abdominal infection [Fatal]
  - Large intestine perforation [Fatal]

NARRATIVE: CASE EVENT DATE: 20101024
